FAERS Safety Report 6417557-1 (Version None)
Quarter: 2009Q4

REPORT INFORMATION
  Report Type: 
  Country: None (occurrence: None)
  Receive Date: 20091028
  Receipt Date: 20091019
  Transmission Date: 20100525
  Serious: Yes (Other)
  Sender: FDA-Public Use
  Company Number: JP-ROCHE-635728

PATIENT
  Sex: Female

DRUGS (4)
  1. ROCEPHIN [Suspect]
     Indication: INFECTION
     Route: 041
     Dates: start: 20090526, end: 20090526
  2. HERCEPTIN [Suspect]
     Indication: BREAST CANCER
     Route: 041
     Dates: end: 20090508
  3. CALONAL [Suspect]
     Indication: DRUG USE FOR UNKNOWN INDICATION
     Dosage: FORM REPORTED AS ORAL FORMULATION.
     Route: 048
  4. CEFDINIR [Suspect]
     Indication: DRUG USE FOR UNKNOWN INDICATION
     Dosage: FORM REPORTED AS ORAL FORMULATION
     Route: 048

REACTIONS (1)
  - INTERSTITIAL LUNG DISEASE [None]
